FAERS Safety Report 7459625-1 (Version None)
Quarter: 2011Q2

REPORT INFORMATION
  Report Type: 
  Country: None (occurrence: None)
  Receive Date: 20110505
  Receipt Date: 20110420
  Transmission Date: 20111010
  Serious: Yes (Hospitalization)
  Sender: FDA-Public Use
  Company Number: PHHY2011CA28993

PATIENT
  Sex: Female

DRUGS (2)
  1. ACLASTA [Suspect]
     Indication: OSTEOPOROSIS
     Dosage: 5 MG
     Route: 042
     Dates: start: 20100413
  2. ACLASTA [Suspect]
     Dosage: UNK
     Route: 042
     Dates: start: 20110412

REACTIONS (3)
  - FALL [None]
  - BLOOD CREATININE INCREASED [None]
  - PELVIC FRACTURE [None]
